FAERS Safety Report 24273338 (Version 4)
Quarter: 2025Q3

REPORT INFORMATION
  Report Type: Report from Study
  Country: JP (occurrence: JP)
  Receive Date: 20240902
  Receipt Date: 20250730
  Transmission Date: 20251021
  Serious: Yes (Other)
  Sender: UCB
  Company Number: JP-UCBJ-CD202407847UCBPHAPROD

PATIENT
  Age: 26 Year
  Sex: Male
  Weight: 60.9 kg

DRUGS (12)
  1. FENFLURAMINE HYDROCHLORIDE [Suspect]
     Active Substance: FENFLURAMINE HYDROCHLORIDE
     Indication: Lennox-Gastaut syndrome
     Route: 048
     Dates: start: 20240703, end: 20240729
  2. FENFLURAMINE HYDROCHLORIDE [Suspect]
     Active Substance: FENFLURAMINE HYDROCHLORIDE
     Route: 048
     Dates: start: 20240730, end: 20240815
  3. FENFLURAMINE HYDROCHLORIDE [Suspect]
     Active Substance: FENFLURAMINE HYDROCHLORIDE
     Route: 048
     Dates: start: 20240816
  4. TEGRETOL [Concomitant]
     Active Substance: CARBAMAZEPINE
     Indication: Lennox-Gastaut syndrome
     Dosage: 200 MILLIGRAM, ONCE DAILY (QD)
     Route: 048
     Dates: end: 20240604
  5. TEGRETOL [Concomitant]
     Active Substance: CARBAMAZEPINE
     Dosage: 100 MILLIGRAM, ONCE DAILY (QD)
     Route: 048
     Dates: start: 20240605, end: 20240909
  6. RIVOTRIL [Concomitant]
     Active Substance: CLONAZEPAM
     Indication: Lennox-Gastaut syndrome
     Dosage: 0.5 MILLIGRAM, ONCE DAILY (QD)
     Route: 048
  7. RISPERDAL [Concomitant]
     Active Substance: RISPERIDONE
     Indication: Lennox-Gastaut syndrome
     Dosage: 1 MILLIGRAM, ONCE DAILY (QD)
     Route: 048
  8. DAYVIGO [Concomitant]
     Active Substance: LEMBOREXANT
     Indication: Lennox-Gastaut syndrome
     Dosage: 7.5 MILLIGRAM, ONCE DAILY (QD)
     Route: 048
  9. BENZALIN [Concomitant]
     Indication: Lennox-Gastaut syndrome
     Dosage: 2 MILLIGRAM, ONCE DAILY (QD)
     Route: 048
     Dates: start: 20240409, end: 20240513
  10. MYSTAN [Concomitant]
     Active Substance: CLOBAZAM
     Indication: Lennox-Gastaut syndrome
     Dosage: 5 MILLIGRAM, ONCE DAILY (QD)
     Route: 048
     Dates: end: 20240408
  11. MYSTAN [Concomitant]
     Active Substance: CLOBAZAM
     Dosage: 5 MILLIGRAM, ONCE DAILY (QD)
     Route: 048
     Dates: start: 20240816
  12. PRIMIDONE [Concomitant]
     Active Substance: PRIMIDONE
     Indication: Lennox-Gastaut syndrome
     Route: 048

REACTIONS (3)
  - Epilepsy [Recovering/Resolving]
  - Prescribed underdose [Unknown]
  - Off label use [Unknown]

NARRATIVE: CASE EVENT DATE: 20240703
